FAERS Safety Report 9865932 (Version 1)
Quarter: 2014Q1

REPORT INFORMATION
  Report Type: Spontaneous
  Country: IN (occurrence: IN)
  Receive Date: 20140203
  Receipt Date: 20140203
  Transmission Date: 20141002
  Serious: Yes (Other)
  Sender: FDA-Public Use
  Company Number: PHHY2014IN012287

PATIENT
  Sex: Male
  Weight: 1.2 kg

DRUGS (4)
  1. CICLOSPORIN [Suspect]
     Route: 064
  2. ANDROGENS [Suspect]
     Route: 064
  3. CEFOTAXIME [Suspect]
     Route: 064
  4. AMIKACIN [Suspect]
     Route: 064

REACTIONS (4)
  - Intestinal atresia [Recovered/Resolved]
  - Low birth weight baby [Unknown]
  - Premature baby [Unknown]
  - Foetal exposure during pregnancy [Unknown]
